FAERS Safety Report 5194505-6 (Version None)
Quarter: 2006Q4

REPORT INFORMATION
  Report Type: 
  Country: None (occurrence: None)
  Receive Date: 20061222
  Receipt Date: 20061221
  Transmission Date: 20070319
  Serious: Yes (Hospitalization, Other)
  Sender: FDA-Public Use
  Company Number: HQWYE842221DEC06

PATIENT
  Age: 48 Year
  Sex: Female

DRUGS (3)
  1. PANTOPRAZOLE SODIUM [Suspect]
     Indication: PROPHYLAXIS
     Dosage: 40 MG 1X PER 1 DAY ORAL
     Route: 048
     Dates: start: 20060904, end: 20060924
  2. NEXEN (NIMESULIDE, ) [Suspect]
     Indication: ARTHRALGIA
     Dosage: ^DF^, FREQUENCY UNKNOWN ORAL
     Route: 048
     Dates: start: 20060904, end: 20060924
  3. LEVOTHYROXINE SODIUM [Concomitant]

REACTIONS (14)
  - CONJUNCTIVITIS [None]
  - ERYTHEMA MULTIFORME [None]
  - FACE OEDEMA [None]
  - GENITAL EROSION [None]
  - GENITAL PRURITUS FEMALE [None]
  - GINGIVITIS [None]
  - HAEMORRHOIDS [None]
  - MUCOSAL EROSION [None]
  - ORAL MUCOSA EROSION [None]
  - PHARYNGEAL LESION [None]
  - PHARYNGOLARYNGEAL PAIN [None]
  - RESPIRATORY DISORDER [None]
  - STOMATITIS [None]
  - URTICARIA [None]
